FAERS Safety Report 8696126 (Version 2)
Quarter: 2012Q4

REPORT INFORMATION
  Report Type: 
  Country: AU (occurrence: AU)
  Receive Date: 20120801
  Receipt Date: 20121206
  Transmission Date: 20130627
  Serious: Yes (Hospitalization, Disabling, Other)
  Sender: FDA-Public Use
  Company Number: AU-009507513-1206USA01264

PATIENT

DRUGS (1)
  1. FOSAMAX PLUS [Suspect]
     Indication: OSTEOPOROSIS
     Dosage: 1 UNK, UNK
     Route: 048
     Dates: end: 20120402

REACTIONS (3)
  - Atypical femur fracture [Recovered/Resolved]
  - Limb deformity [Unknown]
  - Fall [None]
